FAERS Safety Report 7416536-5 (Version None)
Quarter: 2011Q2

REPORT INFORMATION
  Report Type: 
  Country: None (occurrence: None)
  Receive Date: 20110414
  Receipt Date: 20110401
  Transmission Date: 20111010
  Serious: Yes (Other)
  Sender: FDA-Public Use
  Company Number: DE-MYLANLABS-2011S1006983

PATIENT
  Age: 36 Year
  Sex: Female
  Weight: 58 kg

DRUGS (1)
  1. AMITRIPTYLINE [Suspect]
     Indication: INTENTIONAL OVERDOSE

REACTIONS (5)
  - INTENTIONAL OVERDOSE [None]
  - SUICIDE ATTEMPT [None]
  - TACHYCARDIA [None]
  - PUPILLARY LIGHT REFLEX TESTS ABNORMAL [None]
  - SOMNOLENCE [None]
